FAERS Safety Report 7974869-8 (Version None)
Quarter: 2011Q4

REPORT INFORMATION
  Report Type: 
  Country: None (occurrence: None)
  Receive Date: 20111213
  Receipt Date: 20111208
  Transmission Date: 20120403
  Serious: Yes (Hospitalization, Disabling, Other)
  Sender: FDA-Public Use
  Company Number: US-MERCK-1106USA00374

PATIENT
  Age: 74 Year
  Sex: Female
  Weight: 55 kg

DRUGS (6)
  1. VITAMINS (UNSPECIFIED) [Concomitant]
     Route: 065
     Dates: start: 19960101
  2. FOSAMAX [Suspect]
     Indication: OSTEOPOROSIS
     Route: 048
     Dates: start: 20000211, end: 20061201
  3. VITAMIN D (UNSPECIFIED) [Concomitant]
     Route: 065
     Dates: start: 19960101
  4. FOSAMAX [Suspect]
     Route: 048
     Dates: start: 20011201
  5. CALCIUM (UNSPECIFIED) [Concomitant]
     Route: 065
     Dates: start: 19960101
  6. FOSAMAX PLUS D [Suspect]
     Indication: OSTEOPOROSIS
     Route: 048
     Dates: start: 20061201, end: 20100701

REACTIONS (59)
  - DEMENTIA ALZHEIMER'S TYPE [None]
  - ANAEMIA POSTOPERATIVE [None]
  - MILK ALLERGY [None]
  - INTERVERTEBRAL DISC SPACE NARROWING [None]
  - SIALOADENITIS [None]
  - CELLULITIS [None]
  - BONE PAIN [None]
  - BRONCHITIS VIRAL [None]
  - HAEMATOCHEZIA [None]
  - WOUND INFECTION [None]
  - VITAMIN D DEFICIENCY [None]
  - TOOTH INFECTION [None]
  - MYOSITIS [None]
  - SPINAL DECOMPRESSION [None]
  - SLEEP DISORDER [None]
  - DRUG HYPERSENSITIVITY [None]
  - BONE LOSS [None]
  - ANXIETY [None]
  - SPINAL COLUMN STENOSIS [None]
  - OSTEOARTHRITIS [None]
  - BURSITIS [None]
  - BRONCHITIS [None]
  - SCOLIOSIS [None]
  - DEVICE FAILURE [None]
  - PERINEURIAL CYST [None]
  - NERVOUS SYSTEM DISORDER [None]
  - RED BLOOD CELL SEDIMENTATION RATE INCREASED [None]
  - RHEUMATOID ARTHRITIS [None]
  - POLYMYALGIA RHEUMATICA [None]
  - GASTROOESOPHAGEAL REFLUX DISEASE [None]
  - PNEUMONIA VIRAL [None]
  - PAIN IN EXTREMITY [None]
  - FATIGUE [None]
  - DEPRESSION [None]
  - ARRHYTHMIA [None]
  - BLOOD ALKALINE PHOSPHATASE INCREASED [None]
  - FEMUR FRACTURE [None]
  - GAIT DISTURBANCE [None]
  - RECTAL HAEMORRHAGE [None]
  - LOW TURNOVER OSTEOPATHY [None]
  - ISCHAEMIC CEREBRAL INFARCTION [None]
  - IRRITABLE BOWEL SYNDROME [None]
  - VITAMIN B12 DEFICIENCY [None]
  - MULTIPLE ALLERGIES [None]
  - ARTHRITIS [None]
  - ALLERGIC RESPIRATORY DISEASE [None]
  - BACK PAIN [None]
  - KYPHOSIS [None]
  - COLITIS [None]
  - ANAEMIA OF CHRONIC DISEASE [None]
  - APPENDICECTOMY [None]
  - OSTEOPOROSIS [None]
  - CHRONIC OBSTRUCTIVE PULMONARY DISEASE [None]
  - MUSCULOSKELETAL DISCOMFORT [None]
  - BREAST CANCER STAGE I [None]
  - FRACTURE NONUNION [None]
  - CATARACT [None]
  - HEADACHE [None]
  - RASH [None]
